FAERS Safety Report 10484905 (Version 2)
Quarter: 2014Q4

REPORT INFORMATION
  Report Type: Spontaneous
  Country: US (occurrence: US)
  Receive Date: 20140930
  Receipt Date: 20141226
  Transmission Date: 20150528
  Serious: Yes (Hospitalization)
  Sender: FDA-Public Use
  Company Number: US-BAYER-2014-144847

PATIENT
  Age: 28 Year
  Sex: Female
  Weight: 108.84 kg

DRUGS (2)
  1. IBUPROFEN. [Concomitant]
     Active Substance: IBUPROFEN
  2. MIRENA [Suspect]
     Active Substance: LEVONORGESTREL
     Indication: CONTRACEPTION
     Dosage: 20 MCG/24HR, CONT
     Route: 015
     Dates: start: 20111028, end: 20120921

REACTIONS (7)
  - Scar [None]
  - Stress [None]
  - Injury [None]
  - Uterine perforation [None]
  - Abdominal pain lower [None]
  - Fear [None]
  - Nervousness [None]

NARRATIVE: CASE EVENT DATE: 201110
